FAERS Safety Report 21960611 (Version 1)
Quarter: 2023Q1

REPORT INFORMATION
  Report Type: Spontaneous
  Country: DK (occurrence: DK)
  Receive Date: 20230207
  Receipt Date: 20230207
  Transmission Date: 20230418
  Serious: Yes (Other)
  Sender: FDA-Public Use
  Company Number: None

PATIENT
  Age: 54 Year
  Sex: Female
  Weight: 104 kg

DRUGS (3)
  1. SAXENDA [Suspect]
     Active Substance: LIRAGLUTIDE
     Indication: Overweight
     Dosage: 1.8 MG, QD
     Route: 058
     Dates: start: 20220523
  2. RIZATRIPTAN GLENMARK [Concomitant]
     Indication: Migraine
     Dosage: 10 MG AS NECESSARY
     Route: 048
     Dates: start: 20210217
  3. ACTIVELLE [Concomitant]
     Active Substance: ESTRADIOL\NORETHINDRONE ACETATE
     Indication: Hormone therapy
     Dosage: 1 DF, QD ( 0,5 + 1 MG )
     Route: 048
     Dates: start: 20160105

REACTIONS (1)
  - Nephrolithiasis [Recovered/Resolved]

NARRATIVE: CASE EVENT DATE: 20221124
